FAERS Safety Report 23794314 (Version 1)
Quarter: 2024Q2

REPORT INFORMATION
  Report Type: Spontaneous
  Country: US (occurrence: US)
  Receive Date: 20240429
  Receipt Date: 20240429
  Transmission Date: 20240716
  Serious: Yes (Hospitalization, Other)
  Sender: FDA-Public Use
  Company Number: US-AMGEN-USASP2024081808

PATIENT
  Sex: Female

DRUGS (1)
  1. PROLIA [Suspect]
     Active Substance: DENOSUMAB
     Indication: Osteoporosis
     Dosage: 60 MILLIGRAM, Q6MO
     Route: 065
     Dates: start: 202402

REACTIONS (8)
  - Myasthenia gravis [Unknown]
  - Spinal compression fracture [Unknown]
  - Pain in jaw [Not Recovered/Not Resolved]
  - Cough [Unknown]
  - Psoriasis [Unknown]
  - Epistaxis [Unknown]
  - Paraesthesia [Unknown]
  - Urticaria [Unknown]

NARRATIVE: CASE EVENT DATE: 20240301
